FAERS Safety Report 7206083-8 (Version None)
Quarter: 2010Q4

REPORT INFORMATION
  Report Type: 
  Country: None (occurrence: None)
  Receive Date: 20101229
  Receipt Date: 20101229
  Transmission Date: 20110411
  Serious: No
  Sender: FDA-Public Use
  Company Number: None

PATIENT
  Age: 54 Year
  Sex: Female
  Weight: 58.9676 kg

DRUGS (4)
  1. OXYCONTIN [Suspect]
     Indication: ARTHRITIS
     Dosage: 1 TABLET 3 X DAILY PO
     Route: 048
  2. OXYCONTIN [Suspect]
     Indication: BACK PAIN
     Dosage: 1 TABLET 3 X DAILY PO
     Route: 048
  3. OXYCONTIN [Suspect]
     Indication: FIBROMYALGIA
     Dosage: 1 TABLET 3 X DAILY PO
     Route: 048
  4. OXYCONTIN [Suspect]
     Indication: INTERVERTEBRAL DISC PROTRUSION
     Dosage: 1 TABLET 3 X DAILY PO
     Route: 048

REACTIONS (3)
  - DRUG EFFECT DECREASED [None]
  - PAIN [None]
  - PRODUCT QUALITY ISSUE [None]
